FAERS Safety Report 7790890-7 (Version None)
Quarter: 2011Q3

REPORT INFORMATION
  Report Type: 
  Country: None (occurrence: None)
  Receive Date: 20110930
  Receipt Date: 20110921
  Transmission Date: 20111222
  Serious: Yes (Hospitalization)
  Sender: FDA-Public Use
  Company Number: CH-ASTRAZENECA-2011SE57184

PATIENT
  Age: 67 Year
  Sex: Male

DRUGS (7)
  1. REMERON [Suspect]
     Route: 048
     Dates: start: 20110711, end: 20110728
  2. LEVOTHYROXINE SODIUM [Concomitant]
     Route: 048
  3. LOSARTAN POTASSIUM [Concomitant]
     Route: 048
  4. PANTOPRAZOLE [Concomitant]
     Route: 048
  5. LORAZEPAM [Concomitant]
     Route: 048
  6. SEROQUEL [Suspect]
     Route: 048
     Dates: start: 20110726, end: 20110728
  7. CITALOPRAM [Suspect]
     Route: 048
     Dates: start: 20110711, end: 20110728

REACTIONS (4)
  - ELECTROCARDIOGRAM QT INTERVAL ABNORMAL [None]
  - FALL [None]
  - TORSADE DE POINTES [None]
  - CONVULSION [None]
